FAERS Safety Report 12844159 (Version 2)
Quarter: 2017Q1

REPORT INFORMATION
  Report Type: Spontaneous
  Country: US (occurrence: US)
  Receive Date: 20161013
  Receipt Date: 20170112
  Transmission Date: 20170428
  Serious: Yes (Death, Hospitalization, Other)
  Sender: FDA-Public Use
  Company Number: US-TELIGENT, INC-IGIL20160281

PATIENT
  Age: 39 Year
  Sex: Male
  Weight: 84 kg

DRUGS (6)
  1. GABAPENTIN. [Concomitant]
     Active Substance: GABAPENTIN
     Indication: PRODUCT USED FOR UNKNOWN INDICATION
     Route: 065
  2. LIDOCAINE HYDROCHLORIDE TOPICAL SOLUTION, 4% [Suspect]
     Active Substance: LIDOCAINE HYDROCHLORIDE
     Indication: PAIN
     Route: 045
  3. LIDOCAINE HYDROCHLORIDE TOPICAL SOLUTION, 4% [Suspect]
     Active Substance: LIDOCAINE HYDROCHLORIDE
     Indication: PAIN MANAGEMENT
     Route: 045
  4. IBUPROFEN. [Concomitant]
     Active Substance: IBUPROFEN
     Indication: PRODUCT USED FOR UNKNOWN INDICATION
     Route: 065
  5. SULFAMETHOXAZOLE-TRIMETHOPRIM [Concomitant]
     Active Substance: SULFAMETHOXAZOLE\TRIMETHOPRIM
     Indication: PRODUCT USED FOR UNKNOWN INDICATION
     Route: 065
  6. CYCLOBENZAPRINE [Concomitant]
     Active Substance: CYCLOBENZAPRINE
     Indication: PRODUCT USED FOR UNKNOWN INDICATION
     Route: 065

REACTIONS (11)
  - Acute respiratory failure [Fatal]
  - Altered state of consciousness [Unknown]
  - Thrombosis [Unknown]
  - Hemiparesis [Unknown]
  - Coronary artery occlusion [Unknown]
  - Hypotonia [Unknown]
  - Aphasia [Unknown]
  - Depressed level of consciousness [Unknown]
  - Dyspnoea [Unknown]
  - Product use issue [None]
  - Cerebrovascular accident [Fatal]
